FAERS Safety Report 20858462 (Version 1)
Quarter: 2022Q2

REPORT INFORMATION
  Report Type: Spontaneous
  Country: US (occurrence: US)
  Receive Date: 20220521
  Receipt Date: 20220521
  Transmission Date: 20220721
  Serious: No
  Sender: FDA-Public Use
  Company Number: US-AMGEN-USASP2022080427

PATIENT
  Sex: Female

DRUGS (1)
  1. PROLIA [Suspect]
     Active Substance: DENOSUMAB
     Indication: Osteoporosis
     Dosage: UNK UNK, UNK
     Route: 065

REACTIONS (6)
  - Bone loss [Unknown]
  - Gingivitis [Unknown]
  - Wound [Unknown]
  - Gingival erosion [Unknown]
  - Impaired healing [Unknown]
  - Loose tooth [Unknown]
